FAERS Safety Report 4850659-X (Version None)
Quarter: 2005Q4

REPORT INFORMATION
  Report Type: 
  Country: None (occurrence: None)
  Receive Date: 20051212
  Receipt Date: 20050622
  Transmission Date: 20060501
  Serious: No
  Sender: FDA-Public Use
  Company Number: US-BRISTOL-MYERS SQUIBB COMPANY-13013115

PATIENT
  Sex: Female

DRUGS (1)
  1. CHOLESTYRAMINE [Suspect]

REACTIONS (3)
  - DIZZINESS [None]
  - NAUSEA [None]
  - VOMITING [None]
